FAERS Safety Report 7278422-3 (Version None)
Quarter: 2011Q1

REPORT INFORMATION
  Report Type: 
  Country: None (occurrence: None)
  Receive Date: 20110202
  Receipt Date: 20110202
  Transmission Date: 20110831
  Serious: Yes (Life-Threatening, Other)
  Sender: FDA-Public Use
  Company Number: None

PATIENT
  Age: 59 Year
  Sex: Female
  Weight: 70.3075 kg

DRUGS (2)
  1. ENBREL [Suspect]
     Indication: ANKYLOSING SPONDYLITIS
     Dosage: 50 MG ONCE A WEEK SQ
     Dates: start: 20080218, end: 20091101
  2. ENBREL [Suspect]
     Indication: ANKYLOSING SPONDYLITIS
     Dosage: 50 MG ONCE A WEEK SQ
     Dates: start: 20040424, end: 20050725

REACTIONS (5)
  - CARCINOID TUMOUR [None]
  - METASTASES TO LIVER [None]
  - METASTASES TO BONE [None]
  - ABDOMINAL PAIN [None]
  - METASTASES TO LYMPH NODES [None]
